FAERS Safety Report 4432071-0 (Version None)
Quarter: 2004Q3

REPORT INFORMATION
  Report Type: 
  Country: None (occurrence: None)
  Receive Date: 20040825
  Receipt Date: 20040811
  Transmission Date: 20050211
  Serious: Yes (Other)
  Sender: FDA-Public Use
  Company Number: GBWYE971513AUG04

PATIENT
  Sex: Male
  Weight: 52 kg

DRUGS (1)
  1. ENBREL [Suspect]
     Indication: DRUG USE FOR UNKNOWN INDICATION
     Route: 058
     Dates: start: 20030204

REACTIONS (3)
  - DERMATITIS EXFOLIATIVE [None]
  - DYSPNOEA [None]
  - URINARY TRACT INFECTION [None]
